FAERS Safety Report 6714045-X (Version None)
Quarter: 2010Q2

REPORT INFORMATION
  Report Type: 
  Country: None (occurrence: None)
  Receive Date: 20100506
  Receipt Date: 20100428
  Transmission Date: 20101027
  Serious: Yes (Other)
  Sender: FDA-Public Use
  Company Number: PHHY2010MX27841

PATIENT
  Sex: Female

DRUGS (1)
  1. VOLTAREN [Suspect]
     Indication: MYALGIA
     Dosage: 1 APPLICATION (75 MG/3 ML)
     Route: 030
     Dates: start: 20100401

REACTIONS (2)
  - BACK PAIN [None]
  - HEADACHE [None]
